FAERS Safety Report 4814692-6 (Version None)
Quarter: 2005Q4

REPORT INFORMATION
  Report Type: 
  Country: None (occurrence: None)
  Receive Date: 20051028
  Receipt Date: 20051021
  Transmission Date: 20060501
  Serious: Yes (Life-Threatening, Hospitalization, Other)
  Sender: FDA-Public Use
  Company Number: GB-MERCK-0510GBR00147

PATIENT
  Age: 69 Year
  Sex: Female
  Weight: 51 kg

DRUGS (6)
  1. FOSAMAX [Suspect]
     Indication: OSTEOPOROSIS
     Route: 048
     Dates: start: 20050804
  2. ACETAMINOPHEN [Concomitant]
     Indication: PAIN
     Route: 048
     Dates: start: 20050901
  3. BECLOMETHASONE DIPROPIONATE [Concomitant]
     Indication: RHINITIS ALLERGIC
     Route: 048
     Dates: start: 20010101
  4. ALBUTEROL [Concomitant]
     Indication: ASTHMA
     Route: 055
     Dates: start: 19920101
  5. BECLOMETHASONE DIPROPIONATE [Concomitant]
     Indication: ASTHMA
     Route: 055
     Dates: start: 19920101
  6. CALCIUM (UNSPECIFIED) [Concomitant]
     Indication: OSTEOPOROSIS
     Route: 048
     Dates: start: 20050804

REACTIONS (1)
  - IDIOPATHIC THROMBOCYTOPENIC PURPURA [None]
